FAERS Safety Report 4501328-7 (Version None)
Quarter: 2004Q4

REPORT INFORMATION
  Report Type: 
  Country: None (occurrence: None)
  Receive Date: 20041109
  Receipt Date: 20041028
  Transmission Date: 20050328
  Serious: Yes (Hospitalization)
  Sender: FDA-Public Use
  Company Number: 209996

PATIENT
  Age: 72 Year
  Sex: Female
  Weight: 52 kg

DRUGS (5)
  1. RITUXAN [Suspect]
     Indication: NON-HODGKIN'S LYMPHOMA
     Dosage: 570 MG, INTRAVENOUS
     Route: 042
     Dates: start: 20040812
  2. HOLOXAN (IFOSFAMIDE) [Concomitant]
  3. VEPESID [Concomitant]
  4. METHOTREXATE [Concomitant]
  5. MITOGUASONE DIHYDROCHLORIDE (MITOGUASONE DIHYDROCHLORIDE) [Concomitant]

REACTIONS (2)
  - ERYTHEMA NODOSUM [None]
  - PARANEOPLASTIC SYNDROME [None]
